FAERS Safety Report 25362710 (Version 2)
Quarter: 2025Q3

REPORT INFORMATION
  Report Type: Spontaneous
  Country: US (occurrence: US)
  Receive Date: 20250527
  Receipt Date: 20250813
  Transmission Date: 20251021
  Serious: No
  Sender: GALDERMA
  Company Number: US-GALDERMA-US2025007277

PATIENT

DRUGS (2)
  1. NEMLUVIO [Suspect]
     Active Substance: NEMOLIZUMAB-ILTO
     Indication: Urticaria
     Route: 058
     Dates: start: 202503, end: 202503
  2. METOPROLOL [Concomitant]
     Active Substance: METOPROLOL
     Indication: Blood pressure increased

REACTIONS (5)
  - Urticaria [Unknown]
  - Condition aggravated [Unknown]
  - Intentional product use issue [Recovered/Resolved]
  - Product dose omission issue [Recovered/Resolved]
  - Device use issue [Recovered/Resolved]

NARRATIVE: CASE EVENT DATE: 20250101
